FAERS Safety Report 7941380-X (Version None)
Quarter: 2011Q4

REPORT INFORMATION
  Report Type: 
  Country: None (occurrence: None)
  Receive Date: 20111128
  Receipt Date: 20110831
  Transmission Date: 20120403
  Serious: Yes (Death, Other)
  Sender: FDA-Public Use
  Company Number: DE-CELGENEUS-062-50794-11111428

PATIENT
  Age: 78 Year
  Sex: Female

DRUGS (12)
  1. ENALAPRIL MALEATE [Concomitant]
     Route: 065
  2. ARLEVERT [Concomitant]
     Route: 065
  3. FENOTEROL/IPRATROPIUM BROMIDE [Concomitant]
     Route: 055
  4. PANTOPRAZOLE [Concomitant]
     Route: 065
  5. HYDROCHLOROTHIAZIDE [Concomitant]
     Route: 065
  6. BISOPROLOL FUMARATE [Concomitant]
     Route: 065
  7. THEOPHYLLINE [Concomitant]
     Route: 065
  8. METFORMIN HCL [Concomitant]
     Route: 065
  9. VIDAZA [Suspect]
     Dosage: 75 MILLIGRAM/SQ. METER
     Route: 065
     Dates: start: 20110419
  10. ALENDRONIC ACID [Concomitant]
     Route: 065
  11. BECLOMETASONE/FORMOTEROL [Concomitant]
     Route: 055
  12. IBUPROFEN [Concomitant]
     Route: 065

REACTIONS (3)
  - DEATH [None]
  - BLOOD PRODUCT TRANSFUSION DEPENDENT [None]
  - GENERAL PHYSICAL HEALTH DETERIORATION [None]
